FAERS Safety Report 26014858 (Version 1)
Quarter: 2025Q4

REPORT INFORMATION
  Report Type: Spontaneous
  Country: US (occurrence: US)
  Receive Date: 20251108
  Receipt Date: 20251108
  Transmission Date: 20260117
  Serious: No
  Sender: ELI LILLY AND COMPANY
  Company Number: US-ELI_LILLY_AND_COMPANY-US202510020062

PATIENT
  Age: 57 Year
  Sex: Female

DRUGS (4)
  1. ZEPBOUND [Suspect]
     Active Substance: TIRZEPATIDE
     Indication: Diarrhoea
     Dosage: 5 MG, UNKNOWN
     Route: 058
     Dates: start: 20250902
  2. ZEPBOUND [Suspect]
     Active Substance: TIRZEPATIDE
     Indication: Diarrhoea
     Dosage: 5 MG, UNKNOWN
     Route: 058
     Dates: start: 20250902
  3. ZEPBOUND [Suspect]
     Active Substance: TIRZEPATIDE
     Indication: Diarrhoea
     Dosage: 5 MG, UNKNOWN
     Route: 058
     Dates: start: 20250902
  4. ZEPBOUND [Suspect]
     Active Substance: TIRZEPATIDE
     Indication: Diarrhoea
     Dosage: 5 MG, UNKNOWN
     Route: 058
     Dates: start: 20250902

REACTIONS (2)
  - Off label use [Unknown]
  - Nausea [Unknown]
